FAERS Safety Report 10599391 (Version 2)
Quarter: 2016Q1

REPORT INFORMATION
  Report Type: Spontaneous
  Country: GB (occurrence: GB)
  Receive Date: 20141121
  Receipt Date: 20160211
  Transmission Date: 20160525
  Serious: Yes (Other)
  Sender: FDA-Public Use
  Company Number: GB-GLAXOSMITHKLINE-GB2014023048

PATIENT

DRUGS (6)
  1. DESLORATADINE. [Concomitant]
     Active Substance: DESLORATADINE
  2. ERYTHROMYCIN. [Concomitant]
     Active Substance: ERYTHROMYCIN
  3. SYMBICORT [Concomitant]
     Active Substance: BUDESONIDE\FORMOTEROL FUMARATE DIHYDRATE
  4. ATRIPLA [Concomitant]
     Active Substance: EFAVIRENZ\EMTRICITABINE\TENOFOVIR DISOPROXIL FUMARATE
  5. PREGABALIN. [Concomitant]
     Active Substance: PREGABALIN
  6. AVAMYS [Suspect]
     Active Substance: FLUTICASONE FUROATE
     Indication: SINUS DISORDER
     Dosage: 2 SPRAYS PER NOSTRIL
     Route: 045
     Dates: start: 20141103, end: 20141107

REACTIONS (8)
  - Palpitations [Recovered/Resolved]
  - Panic disorder [Recovered/Resolved]
  - Anxiety [Recovered/Resolved]
  - Fear [Recovered/Resolved]
  - Fatigue [Recovered/Resolved]
  - Feeling abnormal [Recovered/Resolved]
  - Malaise [Recovered/Resolved]
  - Paranoia [Recovered/Resolved]

NARRATIVE: CASE EVENT DATE: 20141104
